FAERS Safety Report 25606103 (Version 2)
Quarter: 2025Q3

REPORT INFORMATION
  Report Type: Spontaneous
  Country: EU (occurrence: EU)
  Receive Date: 20250725
  Receipt Date: 20250729
  Transmission Date: 20251021
  Serious: Yes (Hospitalization)
  Sender: PFIZER
  Company Number: EU-PFIZER INC-PV202500088699

PATIENT
  Age: 36 Year
  Sex: Female

DRUGS (4)
  1. METHYLPREDNISOLONE [Suspect]
     Active Substance: METHYLPREDNISOLONE
     Indication: Pericarditis
     Dosage: 0.4 MG/KG, DAILY
  2. IBUPROFEN [Concomitant]
     Active Substance: IBUPROFEN
     Indication: Pericarditis
     Dosage: 600 MG, 3X/DAY
  3. COLCHICINE [Concomitant]
     Active Substance: COLCHICINE
     Indication: Pericarditis
     Dosage: 0.5 MG, DAILY
  4. INDOMETHACIN [Concomitant]
     Active Substance: INDOMETHACIN
     Indication: Pericarditis
     Dosage: 50 MG, 3X/DAY

REACTIONS (4)
  - Swelling face [Unknown]
  - Mood swings [Unknown]
  - Depression [Unknown]
  - Off label use [Unknown]
